FAERS Safety Report 24588744 (Version 1)
Quarter: 2024Q4

REPORT INFORMATION
  Report Type: Spontaneous
  Country: TR (occurrence: TR)
  Receive Date: 20241107
  Receipt Date: 20241107
  Transmission Date: 20250115
  Serious: Yes (Life-Threatening, Hospitalization)
  Sender: STRIDES
  Company Number: TR-STRIDES ARCOLAB LIMITED-2024SP014139

PATIENT
  Age: 19 Year
  Sex: Male

DRUGS (7)
  1. METHYLPHENIDATE [Interacting]
     Active Substance: METHYLPHENIDATE
     Indication: Autism spectrum disorder
     Dosage: 54 MILLIGRAM, QD
     Route: 065
  2. METHYLPHENIDATE [Interacting]
     Active Substance: METHYLPHENIDATE
     Indication: Attention deficit hyperactivity disorder
  3. CLOZAPINE [Interacting]
     Active Substance: CLOZAPINE
     Indication: Bipolar disorder
     Dosage: 100 MILLIGRAM, QD
     Route: 065
  4. CLOZAPINE [Interacting]
     Active Substance: CLOZAPINE
     Indication: Suicide attempt
     Dosage: 18 TABLETS
     Route: 065
  5. VALPROATE SODIUM [Interacting]
     Active Substance: VALPROATE SODIUM
     Indication: Bipolar disorder
     Dosage: 1000 MILLIGRAM, QD
     Route: 065
  6. LURASIDONE [Interacting]
     Active Substance: LURASIDONE
     Indication: Bipolar disorder
     Dosage: 40 MILLIGRAM, QD
     Route: 065
  7. LURASIDONE [Interacting]
     Active Substance: LURASIDONE
     Indication: Attention deficit hyperactivity disorder

REACTIONS (5)
  - Lumbosacral radiculoplexus neuropathy [Recovered/Resolved]
  - Muscle atrophy [Recovered/Resolved]
  - Gait disturbance [Recovered/Resolved]
  - Drug interaction [Recovered/Resolved]
  - Off label use [Unknown]
